FAERS Safety Report 5308340-9 (Version None)
Quarter: 2007Q2

REPORT INFORMATION
  Report Type: 
  Country: None (occurrence: None)
  Receive Date: 20070426
  Receipt Date: 20070418
  Transmission Date: 20071010
  Serious: Yes (Hospitalization, Disabling)
  Sender: FDA-Public Use
  Company Number: PHNR2007AU01020

PATIENT
  Age: 24 Year
  Sex: Male

DRUGS (3)
  1. ZOMETA [Suspect]
  2. PREDNISONE TAB [Suspect]
  3. ENBREL [Suspect]
     Indication: JUVENILE ARTHRITIS
     Dosage: 50MG WEEKLY
     Route: 058

REACTIONS (3)
  - ANKLE FRACTURE [None]
  - BONE GRAFT [None]
  - FRACTURE DELAYED UNION [None]
